FAERS Safety Report 9209526 (Version 1)
Quarter: 2013Q1

REPORT INFORMATION
  Report Type: Spontaneous
  Country: US (occurrence: None)
  Receive Date: 20120816
  Receipt Date: 20120816
  Transmission Date: 20140127
  Serious: Yes (Hospitalization, Disabling)
  Sender: FDA-Public Use
  Company Number: SP03851

PATIENT
  Age: 58 Year
  Sex: Female
  Weight: 75.75 kg

DRUGS (9)
  1. MOVIPREP [Suspect]
     Indication: BOWEL PREPARATION
     Dates: start: 20110726, end: 20110726
  2. CYMBALTA [Concomitant]
  3. FERROUS SULFATE [Concomitant]
  4. LISINOPRIL/HCTZ [Concomitant]
  5. LIPITOR [Concomitant]
  6. LEUCOVORIN [Concomitant]
  7. METHOTREXATE [Concomitant]
  8. PLAVIX [Concomitant]
  9. PROTONIX [Concomitant]

REACTIONS (2)
  - Swelling face [None]
  - Pruritus [None]
